FAERS Safety Report 7482373-9 (Version None)
Quarter: 2011Q2

REPORT INFORMATION
  Report Type: 
  Country: None (occurrence: None)
  Receive Date: 20110516
  Receipt Date: 20110510
  Transmission Date: 20111010
  Serious: Yes (Other)
  Sender: FDA-Public Use
  Company Number: US-PFIZER INC-2011100292

PATIENT
  Sex: Female
  Weight: 68.027 kg

DRUGS (18)
  1. ADVIL LIQUI-GELS [Suspect]
     Indication: INFLAMMATION
     Dosage: 600 MG, 3X/DAY
     Route: 048
     Dates: start: 20110506, end: 20110509
  2. ZOLPIDEM [Concomitant]
     Dosage: 10 MG, 1X/DAY
  3. NAMENDA [Concomitant]
     Indication: MEMORY IMPAIRMENT
     Dosage: 10 MG, UNK
  4. FISH OIL [Concomitant]
     Dosage: UNK
  5. NORTRIPTYLINE [Concomitant]
     Dosage: 35 MG, UNK
  6. GABAPENTIN [Concomitant]
     Dosage: 300 MG, 1X/DAY
  7. ACETYLSALICYLIC ACID [Concomitant]
     Dosage: 81 MG, 1X/DAY
  8. ARICEPT [Concomitant]
     Indication: MEMORY IMPAIRMENT
     Dosage: 25 MG, 1X/DAY
  9. ACETAMINOPHEN [Concomitant]
     Dosage: UNK
  10. CEPHALEXIN [Concomitant]
     Dosage: 25 MG, UNK
  11. VITAMINS NOS [Concomitant]
     Dosage: UNK
  12. PREMARIN [Concomitant]
     Dosage: 10 MG, 1X/DAY
  13. NEXIUM [Concomitant]
     Dosage: 40 MG, 1X/DAY
  14. PLAVIX [Concomitant]
     Indication: CARDIAC DISORDER
     Dosage: 75 MG, 1X/DAY
  15. PRAVASTATIN [Concomitant]
     Dosage: 10 MG, 1X/DAY
  16. CHONDROITIN [Concomitant]
     Dosage: UNK
  17. LOSARTAN [Concomitant]
     Dosage: 100 MG, 1X/DAY
  18. AMLODIPINE BESILATE [Concomitant]
     Dosage: 5 MG, 1X/DAY

REACTIONS (4)
  - OVERDOSE [None]
  - GASTRIC HAEMORRHAGE [None]
  - SOMNOLENCE [None]
  - ABDOMINAL PAIN UPPER [None]
